FAERS Safety Report 7511025-1 (Version None)
Quarter: 2011Q2

REPORT INFORMATION
  Report Type: 
  Country: None (occurrence: None)
  Receive Date: 20110531
  Receipt Date: 20110525
  Transmission Date: 20111010
  Serious: No
  Sender: FDA-Public Use
  Company Number: US-PFIZER INC-2011113908

PATIENT
  Age: 85 Year
  Sex: Female

DRUGS (2)
  1. FUROSEMIDE [Suspect]
     Dosage: EVERY OTHER DAY
  2. NORVASC [Suspect]
     Dosage: EVERY DAY

REACTIONS (4)
  - FLUID RETENTION [None]
  - TREMOR [None]
  - ABNORMAL WEIGHT GAIN [None]
  - DRUG INEFFECTIVE [None]
